FAERS Safety Report 13023912 (Version 2)
Quarter: 2016Q4

REPORT INFORMATION
  Report Type: Report from Study
  Country: CA (occurrence: CA)
  Receive Date: 20161213
  Receipt Date: 20161229
  Transmission Date: 20170207
  Serious: Yes (Hospitalization, Other)
  Sender: FDA-Public Use
  Company Number: CA-GILEAD-2016-0212145

PATIENT
  Age: 44 Year
  Sex: Male

DRUGS (3)
  1. ZYDELIG [Suspect]
     Active Substance: IDELALISIB
     Dosage: 150 MG, BID
     Route: 048
     Dates: start: 20160301
  2. ZYDELIG [Suspect]
     Active Substance: IDELALISIB
     Indication: NON-HODGKIN^S LYMPHOMA UNSPECIFIED HISTOLOGY INDOLENT
     Dosage: 150 MG, UNK
     Route: 048
     Dates: start: 201602, end: 20161204
  3. ZYDELIG [Suspect]
     Active Substance: IDELALISIB
     Dosage: 150 MG, UNK
     Route: 048
     Dates: end: 201611

REACTIONS (17)
  - Abdominal discomfort [Unknown]
  - Fatigue [Unknown]
  - Night sweats [Unknown]
  - Diarrhoea [Recovered/Resolved]
  - Neoplasm [Unknown]
  - Hiccups [Unknown]
  - Hyperhidrosis [Unknown]
  - Decreased appetite [Unknown]
  - Abdominal discomfort [Unknown]
  - Disease progression [Unknown]
  - Chills [Unknown]
  - Pyrexia [Unknown]
  - Piloerection [Unknown]
  - Malaise [Unknown]
  - Heart rate increased [Unknown]
  - Asthenia [Unknown]
  - Vomiting [Recovered/Resolved]

NARRATIVE: CASE EVENT DATE: 201604
